FAERS Safety Report 7961287-1 (Version None)
Quarter: 2011Q4

REPORT INFORMATION
  Report Type: 
  Country: None (occurrence: None)
  Receive Date: 20111201
  Receipt Date: 20111201
  Transmission Date: 20120403
  Serious: Yes (Hospitalization)
  Sender: FDA-Public Use
  Company Number: None

PATIENT
  Age: 40 Year
  Sex: Female
  Weight: 52.5265 kg

DRUGS (11)
  1. OMEPRAZOLE [Concomitant]
  2. SENNA/DOCUSATE [Concomitant]
  3. PROMETHAZINE [Concomitant]
  4. BISACODYL [Concomitant]
  5. LINIFANIB [Suspect]
     Indication: COLON CANCER
     Dosage: ORAL 17.5MG DAILY  PT NEVER STARTED DRUG
     Route: 048
  6. NAPROXEN [Concomitant]
  7. ZOFRAN [Concomitant]
  8. MILK OF MAGNESIA TAB [Concomitant]
  9. MIRALAX [Concomitant]
  10. OXYCODONE HCL [Concomitant]
  11. METOCLOPRAMIDE [Concomitant]

REACTIONS (2)
  - INTESTINAL OBSTRUCTION [None]
  - FAECALOMA [None]
